FAERS Safety Report 4854340-2 (Version None)
Quarter: 2005Q4

REPORT INFORMATION
  Report Type: 
  Country: None (occurrence: None)
  Receive Date: 20051213
  Receipt Date: 20051213
  Transmission Date: 20060501
  Serious: Yes (Death, Life-Threatening, Hospitalization)
  Sender: FDA-Public Use
  Company Number: None

PATIENT
  Age: 71 Year
  Sex: Female
  Weight: 81 kg

DRUGS (2)
  1. INTEGRILIN [Suspect]
     Indication: MYOCARDIAL INFARCTION
     Dosage: 13.5ML/HR  IV DRIP
     Route: 041
     Dates: start: 20051205, end: 20051207
  2. LOVENOX [Suspect]
     Indication: MYOCARDIAL INFARCTION
     Dosage: 90MG  Q24H  SQ
     Route: 058
     Dates: start: 20051205, end: 20051207

REACTIONS (2)
  - HAEMORRHAGE INTRACRANIAL [None]
  - POST PROCEDURAL COMPLICATION [None]
